FAERS Safety Report 26204521 (Version 1)
Quarter: 2025Q4

REPORT INFORMATION
  Report Type: Report from Study
  Country: US (occurrence: US)
  Receive Date: 20251227
  Receipt Date: 20251227
  Transmission Date: 20260119
  Serious: Yes (Other)
  Sender: TEVA
  Company Number: US-TEVA-VS-3405752

PATIENT
  Age: 74 Year
  Sex: Male

DRUGS (4)
  1. AUSTEDO XR [Suspect]
     Active Substance: DEUTETRABENAZINE
     Indication: Tardive dyskinesia
     Dosage: WEEK 4 TITRATION
     Route: 048
     Dates: start: 20251101
  2. AUSTEDO XR [Suspect]
     Active Substance: DEUTETRABENAZINE
     Indication: Tardive dyskinesia
     Dosage: WEEK 1 TITRATION
     Route: 048
     Dates: start: 20251011, end: 20251017
  3. AUSTEDO XR [Suspect]
     Active Substance: DEUTETRABENAZINE
     Indication: Tardive dyskinesia
     Dosage: WEEK 2 TITRATION
     Route: 048
     Dates: start: 20251018, end: 20251024
  4. AUSTEDO XR [Suspect]
     Active Substance: DEUTETRABENAZINE
     Indication: Tardive dyskinesia
     Dosage: WEEK 3 TITRATION
     Route: 048
     Dates: start: 20251025, end: 20251031

REACTIONS (9)
  - Muscle twitching [Unknown]
  - Pyrexia [Unknown]
  - Rhinorrhoea [Not Recovered/Not Resolved]
  - Fatigue [Unknown]
  - Depressed mood [Unknown]
  - Epistaxis [Not Recovered/Not Resolved]
  - Nervousness [Unknown]
  - Diarrhoea [Recovered/Resolved]
  - Gait disturbance [Unknown]
